FAERS Safety Report 13527416 (Version 1)
Quarter: 2017Q2

REPORT INFORMATION
  Report Type: Spontaneous
  Country: GB (occurrence: GB)
  Receive Date: 20170509
  Receipt Date: 20170509
  Transmission Date: 20170830
  Serious: Yes (Other)
  Sender: FDA-Public Use
  Company Number: GB-PFIZER INC-2017198023

PATIENT
  Age: 71 Year
  Sex: Female
  Weight: 57 kg

DRUGS (15)
  1. COD LIVER OIL [Concomitant]
     Active Substance: COD LIVER OIL
     Dosage: 1 DF, 1X/DAY
     Dates: start: 20130927
  2. FOSTAIR [Concomitant]
     Active Substance: BECLOMETHASONE\FORMOTEROL
     Indication: ASTHMA
     Dosage: 1 DF, 2X/DAY
     Route: 055
     Dates: start: 20161213
  3. TRAMADOL. [Concomitant]
     Active Substance: TRAMADOL
     Indication: PAIN
     Dosage: 1 DF, UNK (UP TO FOUR TIMES DAILY)
     Dates: start: 20161107
  4. DOXYCYCLINE MONOHYDRATE [Suspect]
     Active Substance: DOXYCYCLINE
     Dosage: UNK
     Dates: start: 20170420
  5. AMOXICILLIN. [Concomitant]
     Active Substance: AMOXICILLIN
     Dosage: 1 DF, 3X/DAY
     Dates: start: 20170418
  6. SALBUTAMOL [Concomitant]
     Active Substance: ALBUTEROL
     Dosage: 2 DF, AS NEEDED (FOUR TIMES A DAY)
     Route: 055
     Dates: start: 20081126
  7. CARBOCISTEINE [Concomitant]
     Active Substance: CARBOCYSTEINE
     Dosage: 2 DF, 3X/DAY
     Dates: start: 20170306, end: 20170326
  8. CALCEOS [Concomitant]
     Active Substance: CALCIUM CARBONATE\CHOLECALCIFEROL
     Dosage: 1 DF, 2X/DAY
     Dates: start: 20170112
  9. CO AMOXICLAV /00756801/ [Concomitant]
     Active Substance: AMOXICILLIN\CLAVULANIC ACID
     Dosage: 1 DF, 3X/DAY
     Dates: start: 20170213, end: 20170220
  10. LEVOTHYROXINE. [Concomitant]
     Active Substance: LEVOTHYROXINE
     Dosage: 1 DF, ONCE A DAY IN THE MORNING
     Dates: start: 20160617
  11. SENNA /00142201/ [Concomitant]
     Active Substance: SENNA LEAF
     Dosage: UNK (TAKEN 1 OR 2 AT NIGHT)
     Dates: start: 20130207
  12. LACTULOSE. [Concomitant]
     Active Substance: LACTULOSE
     Dosage: UNK (AS DIRECTED 5-15 ML UP TO TWICE A DAY   )
     Dates: start: 20170117
  13. PREDNISOLONE. [Concomitant]
     Active Substance: PREDNISOLONE
     Dosage: 6 DF, 1X/DAY
     Dates: start: 20170306, end: 20170311
  14. FYBOGEL [Concomitant]
     Active Substance: PLANTAGO OVATA SEED
     Indication: FAECES HARD
     Dosage: UNK (1-2 DAILY)
     Dates: start: 20130819
  15. CETIRIZINE [Concomitant]
     Active Substance: CETIRIZINE HYDROCHLORIDE
     Dosage: 1 DF, 1X/DAY
     Dates: start: 20170420

REACTIONS (1)
  - Petechiae [Recovering/Resolving]

NARRATIVE: CASE EVENT DATE: 20170420
